FAERS Safety Report 4515720-8 (Version None)
Quarter: 2004Q4

REPORT INFORMATION
  Report Type: 
  Country: None (occurrence: None)
  Receive Date: 20041201
  Receipt Date: 20040930
  Transmission Date: 20050328
  Serious: Yes (Other)
  Sender: FDA-Public Use
  Company Number: US-MERCK-0410USA00158

PATIENT
  Age: 65 Year
  Sex: Female
  Weight: 99 kg

DRUGS (12)
  1. VIOXX [Suspect]
     Route: 048
     Dates: start: 20020101, end: 20040901
  2. VIOXX [Suspect]
     Route: 065
     Dates: start: 20040901
  3. ZOCOR [Concomitant]
     Route: 048
     Dates: start: 20020101, end: 20040901
  4. ZOCOR [Concomitant]
     Route: 048
     Dates: start: 20040901
  5. ATENOLOL [Concomitant]
     Route: 065
  6. ACCUPRIL [Concomitant]
     Route: 065
  7. FLUOXETINE [Concomitant]
     Route: 065
  8. [THERAPY UNSPECIFIED] [Concomitant]
     Route: 065
  9. NITROGLYCERIN [Concomitant]
     Route: 065
  10. PRILOSEC [Concomitant]
     Route: 065
  11. ASPIRIN [Concomitant]
     Route: 065
  12. CELEBREX [Concomitant]
     Route: 065

REACTIONS (4)
  - ARTERIOSCLEROSIS [None]
  - HEPATIC FUNCTION ABNORMAL [None]
  - LIVER FUNCTION TEST ABNORMAL [None]
  - THROMBOCYTOPENIA [None]
